FAERS Safety Report 5845618-4 (Version None)
Quarter: 2008Q3

REPORT INFORMATION
  Report Type: 
  Country: None (occurrence: None)
  Receive Date: 20080814
  Receipt Date: 20080813
  Transmission Date: 20090109
  Serious: Yes (Death, Life-Threatening)
  Sender: FDA-Public Use
  Company Number: JP-ASTRAZENECA-2008AP06124

PATIENT
  Sex: Male

DRUGS (4)
  1. ZOLADEX [Suspect]
     Indication: PROSTATE CANCER
     Route: 058
     Dates: start: 20080122, end: 20080722
  2. CASODEX [Suspect]
     Indication: PROSTATE CANCER
     Route: 048
  3. FINIBAX [Concomitant]
     Dosage: DAILY DOSE UNKNOWN
     Route: 041
  4. KREMEZIN [Concomitant]
     Dosage: DAILY DOSE UNKNOWN
     Route: 048

REACTIONS (1)
  - HYPERSENSITIVITY [None]
